FAERS Safety Report 5960051-2 (Version None)
Quarter: 2008Q4

REPORT INFORMATION
  Report Type: 
  Country: None (occurrence: None)
  Receive Date: 20081119
  Receipt Date: 20081119
  Transmission Date: 20090506
  Serious: Yes (Hospitalization)
  Sender: FDA-Public Use
  Company Number: None

PATIENT
  Sex: Male
  Weight: 100.7 kg

DRUGS (11)
  1. GLYBURIDE [Suspect]
     Indication: DIABETES MELLITUS
     Dosage: 2.5MG PO DAILY
     Route: 048
     Dates: start: 20080904, end: 20080910
  2. INSULIN ASPART [Suspect]
     Indication: DIABETES MELLITUS
     Dosage: 3 UNITS SQ W/MEALS
     Route: 058
     Dates: start: 20080903, end: 20080910
  3. ASPIRIN [Concomitant]
  4. BISACODYL [Concomitant]
  5. CEFAZOLIN [Concomitant]
  6. MOM [Concomitant]
  7. PERCOCET [Concomitant]
  8. POTASSIUM CHLORIDE [Concomitant]
  9. SIMVASTATIN [Concomitant]
  10. THEOPHYLLINE [Concomitant]
  11. IPRATROPIUM/ALBUTEROL, NSS [Concomitant]

REACTIONS (2)
  - BLOOD GLUCOSE DECREASED [None]
  - DISORIENTATION [None]
